FAERS Safety Report 8900796 (Version 1)
Quarter: 2012Q4

REPORT INFORMATION
  Report Type: 
  Country: CH (occurrence: CH)
  Receive Date: 20121109
  Receipt Date: 20121109
  Transmission Date: 20130627
  Serious: Yes (Hospitalization)
  Sender: FDA-Public Use
  Company Number: CH-ROCHE-1153415

PATIENT
  Sex: Female

DRUGS (7)
  1. PHENPROCOUMON [Suspect]
     Indication: ATRIAL FIBRILLATION
     Route: 048
     Dates: start: 20120913, end: 20120913
  2. PHENPROCOUMON [Suspect]
     Indication: ATRIAL FLUTTER
  3. LUCENTIS [Suspect]
     Indication: AGE-RELATED MACULAR DEGENERATION
     Route: 050
     Dates: start: 20120606
  4. TORASEMIDE [Concomitant]
     Indication: ESSENTIAL HYPERTENSION
     Dosage: 5 mg/d
     Route: 065
  5. CO-VALS [Concomitant]
     Indication: ESSENTIAL HYPERTENSION
     Dosage: 2x40/ 0.625 mg/d
     Route: 065
  6. ZALDIAR [Concomitant]
     Route: 065
  7. DOXIUM [Concomitant]

REACTIONS (4)
  - Fall [Recovered/Resolved with Sequelae]
  - Ataxia [Not Recovered/Not Resolved]
  - Aphagia [Not Recovered/Not Resolved]
  - Subdural haematoma [Not Recovered/Not Resolved]
